FAERS Safety Report 9443397 (Version 1)
Quarter: 2013Q3

REPORT INFORMATION
  Report Type: Spontaneous
  Country: CA (occurrence: CA)
  Receive Date: 20130806
  Receipt Date: 20130806
  Transmission Date: 20140515
  Serious: Yes (Other)
  Sender: FDA-Public Use
  Company Number: PHHY2013CA082906

PATIENT
  Sex: Male

DRUGS (2)
  1. RITALINA [Suspect]
     Dosage: UNK UKN, UNK
  2. CELEXA [Concomitant]
     Dosage: UNK UKN, UNK

REACTIONS (1)
  - Depression [Unknown]
